FAERS Safety Report 16508038 (Version 1)
Quarter: 2019Q3

REPORT INFORMATION
  Report Type: Spontaneous
  Country: US (occurrence: US)
  Receive Date: 20190701
  Receipt Date: 20190701
  Transmission Date: 20191004
  Serious: Yes (Hospitalization)
  Sender: FDA-Public Use
  Company Number: US-MIKART, LLC-2070119

PATIENT
  Age: 63 Year
  Sex: Male
  Weight: 94.18 kg

DRUGS (24)
  1. MORPHINE SULFATE. [Concomitant]
     Active Substance: MORPHINE SULFATE
     Route: 048
  2. AMPYRA [Concomitant]
     Active Substance: DALFAMPRIDINE
     Route: 048
  3. AUGMENTIN [Concomitant]
     Active Substance: AMOXICILLIN\CLAVULANATE POTASSIUM
     Route: 048
  4. MELATONIN [Concomitant]
     Active Substance: MELATONIN
  5. MICONAZOLE. [Concomitant]
     Active Substance: MICONAZOLE
  6. MIRTAZAPINE. [Concomitant]
     Active Substance: MIRTAZAPINE
     Route: 048
  7. ROPINIROLE. [Concomitant]
     Active Substance: ROPINIROLE
     Route: 048
  8. HYDROCODONE BITARTRATE AND ACETAMINOPHEN [Suspect]
     Active Substance: ACETAMINOPHEN\HYDROCODONE BITARTRATE
     Indication: PAIN
     Route: 048
  9. MULTI-VITAMIN [Concomitant]
     Active Substance: .ALPHA.-TOCOPHEROL ACETATE, DL-\ASCORBIC ACID\CYANOCOBALAMIN\FLUORIDE ION\FOLIC ACID\NIACIN\PYRIDOXINE\RIBOFLAVIN\THIAMINE\VITAMIN A\VITAMIN D
     Route: 048
  10. TIZANIDINE. [Concomitant]
     Active Substance: TIZANIDINE
     Route: 048
  11. BACLOFEN. [Concomitant]
     Active Substance: BACLOFEN
     Route: 048
  12. MIRALAX [Concomitant]
     Active Substance: POLYETHYLENE GLYCOL 3350
     Route: 048
  13. DALFAMPRIDINE. [Concomitant]
     Active Substance: DALFAMPRIDINE
     Dates: end: 20190607
  14. OXYCODONE HYDROCHLORIDE. [Concomitant]
     Active Substance: OXYCODONE HYDROCHLORIDE
     Route: 048
  15. TERAZOSIN [Concomitant]
     Active Substance: TERAZOSIN HYDROCHLORIDE
     Route: 048
  16. FLUOXETINE [Concomitant]
     Active Substance: FLUOXETINE HYDROCHLORIDE
     Route: 048
  17. ONDANSETRON [Concomitant]
     Active Substance: ONDANSETRON
     Route: 048
  18. SENNA [Concomitant]
     Active Substance: SENNA LEAF\SENNOSIDES\SENNOSIDES A AND B
     Route: 048
  19. DESMOPRESSIN [Concomitant]
     Active Substance: DESMOPRESSIN
  20. LOVENOX [Concomitant]
     Active Substance: ENOXAPARIN SODIUM
  21. GABAPENTIN. [Concomitant]
     Active Substance: GABAPENTIN
  22. ZINC OXIDE. [Concomitant]
     Active Substance: ZINC OXIDE
     Route: 061
  23. TYLENOL [Concomitant]
     Active Substance: ACETAMINOPHEN
     Route: 048
  24. MIRABEGRON [Concomitant]
     Active Substance: MIRABEGRON
     Route: 048

REACTIONS (3)
  - Humerus fracture [Unknown]
  - Hallucination [Recovering/Resolving]
  - Fall [Unknown]

NARRATIVE: CASE EVENT DATE: 20190610
